FAERS Safety Report 5952496-1 (Version None)
Quarter: 2008Q4

REPORT INFORMATION
  Report Type: 
  Country: None (occurrence: None)
  Receive Date: 20081113
  Receipt Date: 20081103
  Transmission Date: 20090506
  Serious: Yes (Other)
  Sender: FDA-Public Use
  Company Number: FR-PFIZER INC-2008092607

PATIENT
  Sex: Male

DRUGS (1)
  1. LYRICA [Suspect]
     Dates: end: 20081103

REACTIONS (2)
  - EYE PAIN [None]
  - EYELID OEDEMA [None]
